FAERS Safety Report 13216951 (Version 1)
Quarter: 2017Q1

REPORT INFORMATION
  Report Type: Other
  Country: US (occurrence: US)
  Receive Date: 20170210
  Receipt Date: 20170210
  Transmission Date: 20170428
  Serious: No
  Sender: FDA-Public Use
  Company Number: US-ACORDA-ACO_121530_2016

PATIENT
  Age: 53 Year
  Sex: Female

DRUGS (1)
  1. AMPYRA [Suspect]
     Active Substance: DALFAMPRIDINE
     Indication: MULTIPLE SCLEROSIS
     Dosage: 10 MG, Q 12 HRS
     Route: 048
     Dates: start: 20160120

REACTIONS (11)
  - Micturition urgency [Unknown]
  - Urine abnormality [Unknown]
  - Bacterial test positive [Unknown]
  - Blood urine present [Unknown]
  - Culture urine positive [Unknown]
  - Dysuria [Unknown]
  - Chromaturia [Unknown]
  - White blood cells urine positive [Unknown]
  - Diverticulum intestinal [Unknown]
  - Back pain [Unknown]
  - Urine odour abnormal [Unknown]

NARRATIVE: CASE EVENT DATE: 20160125
